FAERS Safety Report 9337242 (Version 1)
Quarter: 2013Q2

REPORT INFORMATION
  Report Type: Spontaneous
  Country: US (occurrence: US)
  Receive Date: 20130607
  Receipt Date: 20130607
  Transmission Date: 20140414
  Serious: Yes (Hospitalization)
  Sender: FDA-Public Use
  Company Number: US-ROCHE-1233838

PATIENT
  Sex: Female

DRUGS (2)
  1. PEGASYS [Suspect]
     Indication: CHRONIC HEPATITIS C
     Route: 065
     Dates: start: 20130510, end: 20130604
  2. COPEGUS [Suspect]
     Indication: CHRONIC HEPATITIS C
     Route: 065
     Dates: start: 20130510, end: 20130604

REACTIONS (6)
  - Muscle spasms [Unknown]
  - Chest pain [Unknown]
  - Muscle spasms [Unknown]
  - Anaemia [Unknown]
  - Syncope [Unknown]
  - Asthenia [Unknown]
